FAERS Safety Report 7106844-X (Version None)
Quarter: 2010Q4

REPORT INFORMATION
  Report Type: 
  Country: None (occurrence: None)
  Receive Date: 20101116
  Receipt Date: 20101101
  Transmission Date: 20110411
  Serious: No
  Sender: FDA-Public Use
  Company Number: US-ABBOTT-10P-163-0682644-00

PATIENT
  Sex: Female
  Weight: 118.04 kg

DRUGS (5)
  1. SIMCOR [Suspect]
     Indication: PRODUCT USED FOR UNKNOWN INDICATION
     Dosage: 500/20MG AT BEDTIME
     Dates: start: 20101030, end: 20101101
  2. VITAMIN D [Concomitant]
     Indication: PROPHYLAXIS
  3. IRON [Concomitant]
     Indication: PROPHYLAXIS
  4. M.V.I. [Concomitant]
     Indication: PRODUCT USED FOR UNKNOWN INDICATION
  5. VITAMIN B-12 [Concomitant]
     Indication: PRODUCT USED FOR UNKNOWN INDICATION

REACTIONS (3)
  - EYE SWELLING [None]
  - FACE OEDEMA [None]
  - SKIN BURNING SENSATION [None]
